FAERS Safety Report 18503167 (Version 1)
Quarter: 2020Q4

REPORT INFORMATION
  Report Type: Spontaneous
  Country: US (occurrence: US)
  Receive Date: 20201113
  Receipt Date: 20201113
  Transmission Date: 20210114
  Serious: Yes (Hospitalization, Other)
  Sender: FDA-Public Use
  Company Number: US-UNITED THERAPEUTICS-UNT-2020-017385

PATIENT
  Sex: Female
  Weight: 68.03 kg

DRUGS (8)
  1. REMODULIN [Suspect]
     Active Substance: TREPROSTINIL
     Indication: PULMONARY ARTERIAL HYPERTENSION
     Dosage: UNK UNK, CONTINUING
     Route: 058
     Dates: end: 2018
  2. REVATIO [Suspect]
     Active Substance: SILDENAFIL CITRATE
     Indication: PRODUCT USED FOR UNKNOWN INDICATION
     Dosage: UNK
     Route: 065
  3. LETAIRIS [Concomitant]
     Active Substance: AMBRISENTAN
     Indication: PRODUCT USED FOR UNKNOWN INDICATION
     Dosage: UNK
     Route: 065
     Dates: start: 2010
  4. ADEMPAS [Concomitant]
     Active Substance: RIOCIGUAT
     Indication: PRODUCT USED FOR UNKNOWN INDICATION
     Dosage: UNK
     Route: 065
     Dates: start: 2012
  5. TYVASO [Suspect]
     Active Substance: TREPROSTINIL
     Indication: PULMONARY ARTERIAL HYPERTENSION
     Dosage: UNK
     Dates: start: 2012, end: 2013
  6. REMODULIN [Suspect]
     Active Substance: TREPROSTINIL
     Indication: PULMONARY ARTERIAL HYPERTENSION
     Dosage: UNK UNK, CONTINUING
     Route: 041
     Dates: start: 2018
  7. FLOLAN [Concomitant]
     Active Substance: EPOPROSTENOL SODIUM
     Indication: PRODUCT USED FOR UNKNOWN INDICATION
     Dosage: UNK
     Route: 065
     Dates: start: 2008, end: 2013
  8. OXYGEN. [Concomitant]
     Active Substance: OXYGEN
     Indication: PRODUCT USED FOR UNKNOWN INDICATION
     Dosage: UNK (SHE IS USING 6 LITERS 24/7 RIGHT NOW)

REACTIONS (15)
  - Wrong technique in product usage process [Unknown]
  - Therapy non-responder [Unknown]
  - Epistaxis [Unknown]
  - Weight decreased [Unknown]
  - Infusion site infection [Unknown]
  - Vascular device infection [Unknown]
  - Dyskinesia [Unknown]
  - Subcutaneous drug absorption impaired [Unknown]
  - Infusion site bruising [Not Recovered/Not Resolved]
  - Pain [Unknown]
  - Syncope [Unknown]
  - Orthostatic hypotension [Unknown]
  - Ascites [Unknown]
  - Systemic lupus erythematosus [Not Recovered/Not Resolved]
  - Infusion site induration [Not Recovered/Not Resolved]

NARRATIVE: CASE EVENT DATE: 2018
